FAERS Safety Report 24056552 (Version 1)
Quarter: 2024Q3

REPORT INFORMATION
  Report Type: Spontaneous
  Country: US (occurrence: US)
  Receive Date: 20240705
  Receipt Date: 20240705
  Transmission Date: 20241017
  Serious: No
  Sender: BOEHRINGER INGELHEIM
  Company Number: US-BoehringerIngelheim-2024-BI-038108

PATIENT
  Age: 61 Year
  Sex: Male

DRUGS (8)
  1. JARDIANCE [Suspect]
     Active Substance: EMPAGLIFLOZIN
     Indication: Product used for unknown indication
     Dosage: UNKNOWN
  2. TRULICITY [Suspect]
     Active Substance: DULAGLUTIDE
     Indication: Product used for unknown indication
     Route: 058
     Dates: start: 202310, end: 202312
  3. TRULICITY [Suspect]
     Active Substance: DULAGLUTIDE
     Route: 058
     Dates: start: 202302, end: 202403
  4. TRULICITY [Suspect]
     Active Substance: DULAGLUTIDE
     Route: 058
     Dates: start: 202403
  5. GABAPENTIN [Concomitant]
     Active Substance: GABAPENTIN
     Indication: Nerve injury
  6. FUROSEMIDE [Concomitant]
     Active Substance: FUROSEMIDE
     Indication: Product used for unknown indication
  7. LISINOPRIL [Concomitant]
     Active Substance: LISINOPRIL
     Indication: Product used for unknown indication
  8. METFORMIN [Concomitant]
     Active Substance: METFORMIN HYDROCHLORIDE
     Indication: Product used for unknown indication

REACTIONS (8)
  - Joint swelling [Unknown]
  - Peripheral swelling [Unknown]
  - Weight increased [Unknown]
  - Oedema peripheral [Unknown]
  - Increased appetite [Unknown]
  - Hypotension [Unknown]
  - Abdominal discomfort [Unknown]
  - Blood glucose decreased [Unknown]
